FAERS Safety Report 8859047 (Version 1)
Quarter: 2012Q4

REPORT INFORMATION
  Report Type: Spontaneous
  Country: US (occurrence: None)
  Receive Date: 20121024
  Receipt Date: 20121024
  Transmission Date: 20130627
  Serious: Yes (Other)
  Sender: FDA-Public Use
  Company Number: None

PATIENT
  Age: 61 Year
  Sex: Male
  Weight: 77.11 kg

DRUGS (2)
  1. HIZENTRA [Suspect]
     Route: 058
     Dates: start: 20110912, end: 20120917
  2. HIZENTRA [Suspect]
     Route: 058
     Dates: start: 20110912, end: 20120917

REACTIONS (6)
  - Influenza [None]
  - Loss of consciousness [None]
  - Pseudomonas infection [None]
  - Influenza like illness [None]
  - Memory impairment [None]
  - Disturbance in attention [None]
